FAERS Safety Report 20725918 (Version 1)
Quarter: 2022Q2

REPORT INFORMATION
  Report Type: Spontaneous
  Country: US (occurrence: US)
  Receive Date: 20220419
  Receipt Date: 20220419
  Transmission Date: 20220721
  Serious: No
  Sender: FDA-Public Use
  Company Number: US-SANOFI-01060627

PATIENT
  Age: 56 Year
  Sex: Female

DRUGS (1)
  1. KEVZARA [Suspect]
     Active Substance: SARILUMAB
     Indication: Rheumatoid arthritis
     Dosage: DRUG STRUCTURE DOSAGE : 200 MG DRUG INTERVAL DOSAGE : Q 2 WEEKS DRUG TREATMENT DURATION:SINCE 6 TO 8

REACTIONS (3)
  - Hepatic enzyme abnormal [Recovering/Resolving]
  - Drug effect less than expected [Unknown]
  - Inappropriate schedule of product administration [Unknown]
